FAERS Safety Report 4590062-3 (Version None)
Quarter: 2005Q1

REPORT INFORMATION
  Report Type: 
  Country: None (occurrence: None)
  Receive Date: 20050217
  Receipt Date: 20050217
  Transmission Date: 20050727
  Serious: Yes (Other)
  Sender: FDA-Public Use
  Company Number: None

PATIENT
  Age: 62 Year
  Sex: Female
  Weight: 100.2 kg

DRUGS (1)
  1. COLESTIPOL HCL [Suspect]

REACTIONS (2)
  - EYE SWELLING [None]
  - URTICARIA [None]
